FAERS Safety Report 17772745 (Version 1)
Quarter: 2020Q2

REPORT INFORMATION
  Report Type: Spontaneous
  Country: SI (occurrence: SI)
  Receive Date: 20200512
  Receipt Date: 20200512
  Transmission Date: 20200714
  Serious: Yes (Other)
  Sender: FDA-Public Use
  Company Number: SI-BAYER-2020-077907

PATIENT
  Age: 59 Year
  Sex: Male

DRUGS (3)
  1. UREA CREAM WITH LACTIC ACID [Concomitant]
     Dosage: UNK
  2. STIVARGA [Suspect]
     Active Substance: REGORAFENIB
     Indication: COLON CANCER
     Dosage: DAILY DOSE 80 MG
     Route: 048
     Dates: start: 2019
  3. STIVARGA [Suspect]
     Active Substance: REGORAFENIB
     Indication: COLON CANCER
     Dosage: DAILY DOSE 120 MG
     Route: 048

REACTIONS (4)
  - Fatigue [None]
  - Decreased appetite [None]
  - Colon cancer [None]
  - Performance status decreased [None]
